FAERS Safety Report 8844986 (Version 2)
Quarter: 2012Q4

REPORT INFORMATION
  Report Type: 
  Country: US (occurrence: US)
  Receive Date: 20121017
  Receipt Date: 20121023
  Transmission Date: 20130627
  Serious: Yes (Death)
  Sender: FDA-Public Use
  Company Number: US-009507513-1210USA002862

PATIENT
  Age: 24 Year
  Sex: Male

DRUGS (1)
  1. TEMODAR [Suspect]
     Indication: GLIOMA
     Dosage: 150 mg/m2,5/28 days
     Route: 048

REACTIONS (1)
  - Disease progression [Fatal]
